FAERS Safety Report 6280415-X (Version None)
Quarter: 2009Q3

REPORT INFORMATION
  Report Type: 
  Country: None (occurrence: None)
  Receive Date: 20090724
  Receipt Date: 20090629
  Transmission Date: 20100115
  Serious: Yes (Other)
  Sender: FDA-Public Use
  Company Number: FR-PFIZER INC-2009233865

PATIENT
  Age: 30 Year

DRUGS (1)
  1. AMLOR [Suspect]

REACTIONS (3)
  - INTENTIONAL OVERDOSE [None]
  - OVERDOSE [None]
  - SELF-MEDICATION [None]
